FAERS Safety Report 4376175-X (Version None)
Quarter: 2004Q2

REPORT INFORMATION
  Report Type: 
  Country: None (occurrence: None)
  Receive Date: 20040610
  Receipt Date: 20040610
  Transmission Date: 20050107
  Serious: Yes (Hospitalization, Other)
  Sender: FDA-Public Use
  Company Number: None

PATIENT
  Age: 68 Year
  Sex: Male

DRUGS (3)
  1. VINBLASTINE (3 MG /M2) [Suspect]
     Indication: BLADDER CANCER
     Dosage: 3MG / M2
     Dates: start: 20040527
  2. CISPLATIN [Suspect]
     Dosage: 70 MG/M2
     Dates: start: 20040527
  3. ADRIAMYCIN PFS [Suspect]
     Indication: BLADDER CANCER
     Dosage: 30 MG/M2
     Dates: start: 20040527

REACTIONS (4)
  - DEEP VEIN THROMBOSIS [None]
  - DEHYDRATION [None]
  - FATIGUE [None]
  - NEUTROPENIA [None]
